FAERS Safety Report 5491248-6 (Version None)
Quarter: 2007Q4

REPORT INFORMATION
  Report Type: 
  Country: None (occurrence: None)
  Receive Date: 20071019
  Receipt Date: 20071016
  Transmission Date: 20080405
  Serious: Yes (Life-Threatening, Other)
  Sender: FDA-Public Use
  Company Number: JP-MERCK-0709USA02138

PATIENT
  Age: 3 Month
  Sex: Male

DRUGS (4)
  1. PERIACTIN [Suspect]
     Indication: NASOPHARYNGITIS
     Route: 048
     Dates: end: 20070722
  2. PERIACTIN [Suspect]
     Indication: URTICARIA
     Route: 048
     Dates: end: 20070722
  3. MUCODYNE [Concomitant]
     Indication: DRUG USE FOR UNKNOWN INDICATION
     Route: 048
     Dates: end: 20070722
  4. ASVERIN [Concomitant]
     Indication: DRUG USE FOR UNKNOWN INDICATION
     Route: 048
     Dates: end: 20070722

REACTIONS (1)
  - TOXIC EPIDERMAL NECROLYSIS [None]
